FAERS Safety Report 21090899 (Version 1)
Quarter: 2022Q3

REPORT INFORMATION
  Report Type: Spontaneous
  Country: ES (occurrence: ES)
  Receive Date: 20220716
  Receipt Date: 20220716
  Transmission Date: 20221027
  Serious: Yes (Other)
  Sender: FDA-Public Use
  Company Number: None

PATIENT
  Age: 74 Year
  Sex: Male

DRUGS (3)
  1. TENOFOVIR DISOPROXIL [Suspect]
     Active Substance: TENOFOVIR DISOPROXIL
     Indication: Acute hepatitis B
     Dosage: FILM COATED TABLET EFG, 30 X 1 TABLET
     Dates: start: 20220426, end: 20220526
  2. SIMVASTATIN STADA [Concomitant]
     Indication: Product used for unknown indication
     Dosage: FILM COATED TABLET, EFG, 28 TABLETS
     Dates: start: 20210921, end: 20220530
  3. DUTASTERIDE\TAMSULOSIN [Concomitant]
     Active Substance: DUTASTERIDE\TAMSULOSIN
     Indication: Product used for unknown indication
     Dosage: FORM STRENGTH 0.5 MG/0.4 MG, 30 CAPSULES
     Dates: start: 20200716

REACTIONS (3)
  - Muscle spasms [Recovered/Resolved]
  - Muscle rigidity [Recovered/Resolved]
  - Myalgia [Recovered/Resolved]

NARRATIVE: CASE EVENT DATE: 20220519
